FAERS Safety Report 9849318 (Version 1)
Quarter: 2013Q4

REPORT INFORMATION
  Report Type: Spontaneous
  Country: US (occurrence: None)
  Receive Date: 20131226
  Receipt Date: 20131226
  Transmission Date: 20140711
  Serious: Yes (Hospitalization)
  Sender: FDA-Public Use
  Company Number: PHEH2012US022888

PATIENT
  Age: 73 Year
  Sex: Female

DRUGS (1)
  1. ZOMETA (ZOLEDRONATE) SOLUTION FOR INJECTION [Suspect]
     Indication: PLASMA CELL MYELOMA
     Dosage: UNK , INTRAVENOUS
     Route: 042
     Dates: start: 20110815

REACTIONS (1)
  - Renal failure [None]
